FAERS Safety Report 15225747 (Version 1)
Quarter: 2018Q3

REPORT INFORMATION
  Report Type: Spontaneous
  Country: US (occurrence: US)
  Receive Date: 20180801
  Receipt Date: 20180801
  Transmission Date: 20181010
  Serious: No
  Sender: FDA-Public Use
  Company Number: US-PFIZER INC-2018054022

PATIENT
  Age: 55 Year
  Sex: Female
  Weight: 245 kg

DRUGS (2)
  1. PARAPLATIN [Concomitant]
     Active Substance: CARBOPLATIN
     Dosage: UNK
  2. DOCETAXEL. [Suspect]
     Active Substance: DOCETAXEL
     Indication: BREAST CANCER
     Dosage: 174.9 UNK, EVERY 3 WEEKS
     Dates: start: 20120224

REACTIONS (5)
  - Hair texture abnormal [Recovering/Resolving]
  - Hair colour changes [Recovering/Resolving]
  - Hair disorder [Recovering/Resolving]
  - Alopecia [Recovering/Resolving]
  - Madarosis [Recovering/Resolving]
